FAERS Safety Report 16688229 (Version 2)
Quarter: 2019Q3

REPORT INFORMATION
  Report Type: Report from Study
  Country: US (occurrence: US)
  Receive Date: 20190809
  Receipt Date: 20190912
  Transmission Date: 20191004
  Serious: Yes (Hospitalization, Other)
  Sender: FDA-Public Use
  Company Number: US-ACTELION-A-NJ2019-194077

PATIENT
  Age: 59 Year
  Sex: Female

DRUGS (16)
  1. LASIX [Concomitant]
     Active Substance: FUROSEMIDE
  2. MAGNESIUM OXIDE. [Concomitant]
     Active Substance: MAGNESIUM OXIDE
  3. POTASSIUM CHLORIDE. [Concomitant]
     Active Substance: POTASSIUM CHLORIDE
  4. SILDENAFIL. [Concomitant]
     Active Substance: SILDENAFIL
     Indication: PULMONARY HYPERTENSION
     Dosage: UNK
  5. LOMOTIL [Concomitant]
     Active Substance: ATROPINE SULFATE\DIPHENOXYLATE HYDROCHLORIDE
  6. ZOFRAN [Concomitant]
     Active Substance: ONDANSETRON HYDROCHLORIDE
  7. CULTURELLE [Concomitant]
     Active Substance: LACTOBACILLUS RHAMNOSUS
  8. CAPTOPRIL. [Concomitant]
     Active Substance: CAPTOPRIL
  9. TYLENOL [Concomitant]
     Active Substance: ACETAMINOPHEN
  10. FUROSEMIDE. [Concomitant]
     Active Substance: FUROSEMIDE
  11. OPSUMIT [Suspect]
     Active Substance: MACITENTAN
     Indication: PULMONARY HYPERTENSION
     Dosage: 10 MG, QD
     Route: 048
     Dates: start: 201805
  12. FLONASE [Concomitant]
     Active Substance: FLUTICASONE PROPIONATE
  13. CELLCEPT [Concomitant]
     Active Substance: MYCOPHENOLATE MOFETIL\MYCOPHENOLATE MOFETIL HYDROCHLORIDE
     Indication: SCLERODERMA
     Dosage: UNK
  14. PREDNISONE. [Concomitant]
     Active Substance: PREDNISONE
     Indication: SCLERODERMA
     Dosage: UNK
  15. ATORVASTATIN [Concomitant]
     Active Substance: ATORVASTATIN
  16. OMEPRAZOLE. [Concomitant]
     Active Substance: OMEPRAZOLE

REACTIONS (10)
  - Haemodialysis [Unknown]
  - Hypoxia [Recovering/Resolving]
  - Nausea [Unknown]
  - Diarrhoea [Unknown]
  - Cardiac failure congestive [Unknown]
  - Dyspnoea exertional [Recovering/Resolving]
  - Acute kidney injury [Unknown]
  - Cellulitis [Unknown]
  - Catheter placement [Unknown]
  - Biopsy kidney [Unknown]

NARRATIVE: CASE EVENT DATE: 20190725
